FAERS Safety Report 7930460-0 (Version None)
Quarter: 2011Q4

REPORT INFORMATION
  Report Type: 
  Country: None (occurrence: None)
  Receive Date: 20111121
  Receipt Date: 20111114
  Transmission Date: 20120403
  Serious: Yes (Other)
  Sender: FDA-Public Use
  Company Number: US-AMGEN-USASP2011059877

PATIENT
  Age: 50 Year
  Sex: Female

DRUGS (2)
  1. ENBREL [Suspect]
     Indication: RHEUMATOID ARTHRITIS
     Dosage: 50 MG, QWK
     Dates: start: 20111101
  2. TOPAMAX [Concomitant]
     Dosage: UNK
     Dates: end: 20111111

REACTIONS (15)
  - APHASIA [None]
  - SECRETION DISCHARGE [None]
  - INSOMNIA [None]
  - HEADACHE [None]
  - DIZZINESS [None]
  - TREMOR [None]
  - HOT FLUSH [None]
  - THOUGHT BLOCKING [None]
  - SINUS HEADACHE [None]
  - PAIN IN JAW [None]
  - NECK PAIN [None]
  - SNEEZING [None]
  - FATIGUE [None]
  - ABNORMAL SENSATION IN EYE [None]
  - DRUG INEFFECTIVE [None]
